FAERS Safety Report 17238696 (Version 1)
Quarter: 2020Q1

REPORT INFORMATION
  Report Type: Spontaneous
  Country: RU (occurrence: RU)
  Receive Date: 20200106
  Receipt Date: 20200106
  Transmission Date: 20200409
  Serious: Yes (Other)
  Sender: FDA-Public Use
  Company Number: RU-ELI_LILLY_AND_COMPANY-RU202001000249

PATIENT
  Age: 62 Year
  Sex: Male

DRUGS (2)
  1. 5 FU [Concomitant]
     Active Substance: FLUOROURACIL
     Indication: LARYNGEAL SQUAMOUS CELL CARCINOMA
     Dosage: UNK UNK, UNKNOWN
     Route: 065
     Dates: start: 20180607, end: 20180703
  2. ERBITUX [Suspect]
     Active Substance: CETUXIMAB
     Indication: LARYNGEAL SQUAMOUS CELL CARCINOMA
     Dosage: UNK, UNKNOWN
     Route: 065
     Dates: start: 20180607

REACTIONS (1)
  - Disease recurrence [Unknown]

NARRATIVE: CASE EVENT DATE: 20181029
